FAERS Safety Report 23279682 (Version 1)
Quarter: 2023Q4

REPORT INFORMATION
  Report Type: Spontaneous
  Country: GB (occurrence: GB)
  Receive Date: 20231210
  Receipt Date: 20231210
  Transmission Date: 20240110
  Serious: Yes (Life-Threatening, Hospitalization, Disabling, Other)
  Sender: FDA-Public Use
  Company Number: None

PATIENT
  Age: 66 Year
  Sex: Female
  Weight: 50 kg

DRUGS (1)
  1. MONTELUKAST [Suspect]
     Active Substance: MONTELUKAST SODIUM
     Indication: Asthma
     Dosage: 10MG ONCE A DAY IN THE EVENING
     Route: 065
     Dates: start: 2018, end: 20230326

REACTIONS (3)
  - Mania [Not Recovered/Not Resolved]
  - Delusion [Unknown]
  - Hypersexuality [Unknown]

NARRATIVE: CASE EVENT DATE: 20230215
